FAERS Safety Report 8070543-0 (Version None)
Quarter: 2012Q1

REPORT INFORMATION
  Report Type: 
  Country: None (occurrence: None)
  Receive Date: 20120125
  Receipt Date: 20120113
  Transmission Date: 20120608
  Serious: Yes (Hospitalization)
  Sender: FDA-Public Use
  Company Number: DE-ELI_LILLY_AND_COMPANY-DE201201003992

PATIENT
  Sex: Male
  Weight: 69 kg

DRUGS (13)
  1. DEXAMETHASONE [Concomitant]
     Indication: DECREASED APPETITE
     Dosage: UNK
     Dates: start: 20111116
  2. CLINDAMYCIN [Concomitant]
     Indication: PARONYCHIA
     Dosage: UNK
     Dates: start: 20111212
  3. GEMCITABINE HYDROCHLORIDE [Suspect]
     Indication: NON-SMALL CELL LUNG CANCER
     Dosage: UNK
     Route: 042
     Dates: start: 20011109
  4. NECITUMUMAB (11F8) (LY3012211) [Suspect]
     Indication: NON-SMALL CELL LUNG CANCER
     Dosage: UNK
     Route: 042
     Dates: start: 20111109
  5. CISPLATIN [Suspect]
     Indication: NON-SMALL CELL LUNG CANCER
     Dosage: UNK
     Route: 042
     Dates: start: 20111109
  6. OXAZEPAM [Concomitant]
     Indication: INSOMNIA
     Dosage: UNK, PRN
     Dates: start: 20111121
  7. LAXOBERAL [Concomitant]
     Indication: CONSTIPATION
     Dosage: UNK
     Dates: start: 20111116
  8. ACC 200 [Concomitant]
     Indication: COUGH
     Dosage: UNK
     Dates: start: 20111101
  9. PARACODIN BITARTRATE TAB [Concomitant]
     Indication: COUGH
     Dosage: UNK
     Dates: start: 20111102
  10. NOCTAMID [Concomitant]
     Indication: INSOMNIA
     Dosage: UNK
     Dates: start: 20111101
  11. VOLTAREN [Concomitant]
     Indication: BONE PAIN
     Dosage: UNK UNK, PRN
     Route: 048
     Dates: start: 20110101
  12. DOXYCYCLINE [Concomitant]
     Indication: RASH
     Dosage: UNK
     Dates: start: 20111121
  13. NOVOSULFIN [Concomitant]
     Indication: PARONYCHIA
     Dosage: UNK
     Dates: start: 20111219

REACTIONS (1)
  - PULMONARY EMBOLISM [None]
